FAERS Safety Report 7138190-2 (Version None)
Quarter: 2010Q4

REPORT INFORMATION
  Report Type: 
  Country: None (occurrence: None)
  Receive Date: 20101206
  Receipt Date: 20100618
  Transmission Date: 20110411
  Serious: No
  Sender: FDA-Public Use
  Company Number: US-ABBOTT-10P-163-0622119-00

PATIENT
  Sex: Female

DRUGS (1)
  1. OMNICEF [Suspect]
     Indication: PHARYNGITIS STREPTOCOCCAL
     Dates: start: 20100115, end: 20100119

REACTIONS (7)
  - ARTHRALGIA [None]
  - DIARRHOEA [None]
  - FACIAL PAIN [None]
  - HEADACHE [None]
  - NAUSEA [None]
  - SKIN EXFOLIATION [None]
  - URTICARIA [None]
